FAERS Safety Report 25144438 (Version 1)
Quarter: 2025Q2

REPORT INFORMATION
  Report Type: Spontaneous
  Country: US (occurrence: US)
  Receive Date: 20250401
  Receipt Date: 20250401
  Transmission Date: 20250717
  Serious: No
  Sender: BAYER
  Company Number: US-BAYER-2025A041284

PATIENT
  Age: 61 Year
  Sex: Male

DRUGS (2)
  1. ASTEPRO [Suspect]
     Active Substance: AZELASTINE HYDROCHLORIDE
     Dates: start: 20250319, end: 20250324
  2. MESALAMINE [Concomitant]
     Active Substance: MESALAMINE

REACTIONS (2)
  - Palpitations [Not Recovered/Not Resolved]
  - Adverse event [Not Recovered/Not Resolved]
